FAERS Safety Report 25096897 (Version 1)
Quarter: 2025Q1

REPORT INFORMATION
  Report Type: Spontaneous
  Country: US (occurrence: US)
  Receive Date: 20250319
  Receipt Date: 20250319
  Transmission Date: 20250408
  Serious: Yes (Other)
  Sender: EYWA PHARMA INC.
  Company Number: US-Eywa Pharma Inc.-2173247

PATIENT

DRUGS (1)
  1. ALBUTEROL [Suspect]
     Active Substance: ALBUTEROL
     Indication: Product used for unknown indication

REACTIONS (3)
  - Blindness [Unknown]
  - Presyncope [Unknown]
  - Vertigo [Unknown]
